FAERS Safety Report 9792283 (Version 1)
Quarter: 2013Q4

REPORT INFORMATION
  Report Type: Spontaneous
  Country: US (occurrence: None)
  Receive Date: 20131230
  Receipt Date: 20131230
  Transmission Date: 20140711
  Serious: Yes (Death)
  Sender: FDA-Public Use
  Company Number: FK201305539

PATIENT
  Age: 84 Year
  Sex: Male
  Weight: 68.04 kg

DRUGS (5)
  1. ASTRAMORPH [Suspect]
     Indication: PRODUCT USED FOR UNKNOWN INDICATION
  2. NEXIUM (ESOMEPRAZOLE MAGNESIUM) [Suspect]
     Indication: REFLUX GASTRITIS
     Route: 048
     Dates: end: 201207
  3. CRESTOR [Suspect]
     Indication: BLOOD CHOLESTEROL INCREASED
     Route: 048
     Dates: end: 201207
  4. WARFARIN (WARFARIN) [Concomitant]
  5. UNKNOWN MEDICATION [Concomitant]

REACTIONS (3)
  - Bone cancer [None]
  - Bladder cancer [None]
  - Visual acuity reduced [None]
